FAERS Safety Report 4978951-9 (Version None)
Quarter: 2006Q2

REPORT INFORMATION
  Report Type: 
  Country: None (occurrence: None)
  Receive Date: 20060419
  Receipt Date: 20060419
  Transmission Date: 20061013
  Serious: Yes (Hospitalization)
  Sender: FDA-Public Use
  Company Number: None

PATIENT
  Age: 6 Year
  Sex: Female
  Weight: 19.5 kg

DRUGS (2)
  1. ZYPREXA [Suspect]
     Indication: CONVULSION
     Dosage: 15 MG 1 OR 2 PILLS PO
     Route: 048
     Dates: start: 20060417
  2. KEPPRA [Suspect]
     Dosage: 250 MG 2 PILLS Q 12 H PO
     Route: 048

REACTIONS (4)
  - DRUG DISPENSING ERROR [None]
  - LOSS OF CONSCIOUSNESS [None]
  - MEDICATION ERROR [None]
  - WRONG DRUG ADMINISTERED [None]
